FAERS Safety Report 7461093-0 (Version None)
Quarter: 2011Q2

REPORT INFORMATION
  Report Type: 
  Country: None (occurrence: None)
  Receive Date: 20110505
  Receipt Date: 20110425
  Transmission Date: 20111010
  Serious: Yes (Death, Hospitalization, Other)
  Sender: FDA-Public Use
  Company Number: US-BAXTER-2011BH009251

PATIENT
  Age: 52 Year
  Sex: Male

DRUGS (4)
  1. DIANEAL [Suspect]
     Dates: start: 20110301, end: 20110404
  2. DIANEAL [Suspect]
     Indication: PERITONEAL DIALYSIS
     Route: 033
     Dates: end: 20110101
  3. DIANEAL [Suspect]
     Dates: start: 20110301, end: 20110404
  4. DIANEAL [Suspect]
     Indication: PERITONEAL DIALYSIS
     Route: 033
     Dates: end: 20110101

REACTIONS (5)
  - CARDIAC ARREST [None]
  - JOINT INJURY [None]
  - FALL [None]
  - CATHETER SITE INFECTION [None]
  - HYPOTENSION [None]
